FAERS Safety Report 8922917 (Version 1)
Quarter: 2012Q4

REPORT INFORMATION
  Report Type: Spontaneous
  Country: US (occurrence: None)
  Receive Date: 20121115
  Receipt Date: 20121115
  Transmission Date: 20130627
  Serious: Yes (Hospitalization, Other)
  Sender: FDA-Public Use
  Company Number: 2012MA006879

PATIENT
  Age: 45 Year
  Sex: Male
  Weight: 119.3 kg

DRUGS (8)
  1. SYMLINPEN [Suspect]
     Indication: INSULIN-DEPENDENT DIABETES MELLITUS
     Route: 058
     Dates: start: 201209
  2. SYMLINPEN [Suspect]
     Indication: INSULIN-DEPENDENT DIABETES MELLITUS
     Route: 058
     Dates: start: 201110, end: 201209
  3. NOVOLOG [Concomitant]
  4. LANTUS [Concomitant]
  5. WARFARIN [Concomitant]
  6. ANTIHYPERTENSIVES [Concomitant]
  7. ASA [Concomitant]
  8. FISH OIL [Concomitant]

REACTIONS (8)
  - Cerebrovascular accident [None]
  - Subdural haematoma [None]
  - Head injury [None]
  - Hypotension [None]
  - Epistaxis [None]
  - VIIth nerve paralysis [None]
  - Fall [None]
  - Weight decreased [None]
